FAERS Safety Report 4874362-5 (Version None)
Quarter: 2006Q1

REPORT INFORMATION
  Report Type: 
  Country: None (occurrence: None)
  Receive Date: 20060106
  Receipt Date: 20051227
  Transmission Date: 20060701
  Serious: Yes (Hospitalization)
  Sender: FDA-Public Use
  Company Number: PE-BRISTOL-MYERS SQUIBB COMPANY-13230461

PATIENT
  Age: 42 Year
  Sex: Female

DRUGS (15)
  1. ABATACEPT [Suspect]
     Indication: RHEUMATOID ARTHRITIS
     Route: 042
     Dates: start: 20050425
  2. BLINDED: INFLIXIMAB [Suspect]
     Indication: RHEUMATOID ARTHRITIS
     Route: 042
     Dates: start: 20050425
  3. BLINDED: PLACEBO [Suspect]
     Indication: RHEUMATOID ARTHRITIS
     Route: 042
     Dates: start: 20050425
  4. METHOTREXATE [Suspect]
     Indication: RHEUMATOID ARTHRITIS
     Dosage: 10MG TABS DAILY FROM DEC-2003 TO AUG-2004
     Route: 058
     Dates: start: 20041201, end: 20051214
  5. PREDNISONE [Concomitant]
     Indication: RHEUMATOID ARTHRITIS
     Route: 048
     Dates: start: 20041118
  6. LEVOTHYROXINE [Concomitant]
     Route: 048
     Dates: start: 20010101
  7. ETHINYL ESTRADIOL TAB [Concomitant]
     Route: 048
     Dates: start: 20050728
  8. LEVONORGESTREL [Concomitant]
     Route: 048
     Dates: start: 20050728
  9. NAPROXEN [Concomitant]
     Route: 048
     Dates: start: 20041211
  10. RANITIDINE [Concomitant]
     Route: 048
     Dates: start: 20041116
  11. ACETAMINOPHEN [Concomitant]
     Route: 048
     Dates: start: 20041201
  12. FOLIC ACID [Concomitant]
     Route: 048
     Dates: start: 20041217
  13. FERROUS SULFATE TAB [Concomitant]
     Route: 048
     Dates: start: 20041217
  14. ALUMINUM HYDROXIDE [Concomitant]
     Route: 048
     Dates: start: 20041217
  15. CARBOXYMETHYLCELLULOSE SODIUM [Concomitant]
     Route: 047
     Dates: start: 20041101

REACTIONS (1)
  - THROMBOCYTOPENIA [None]
